FAERS Safety Report 13057074 (Version 1)
Quarter: 2016Q4

REPORT INFORMATION
  Report Type: Spontaneous
  Country: TW (occurrence: TW)
  Receive Date: 20161222
  Receipt Date: 20161222
  Transmission Date: 20170207
  Serious: Yes (Other)
  Sender: FDA-Public Use
  Company Number: PHHY2016TW140419

PATIENT
  Age: 56 Year
  Sex: Male

DRUGS (15)
  1. VALPROATE SODIUM. [Interacting]
     Active Substance: VALPROATE SODIUM
     Indication: PSYCHOTIC BEHAVIOUR
     Dosage: 500 MG, (1/ HS)
     Route: 065
  2. LORAZEPAM. [Interacting]
     Active Substance: LORAZEPAM
     Indication: PSYCHOTIC BEHAVIOUR
     Dosage: 1 MG, (1/HS)
     Route: 065
  3. CLOZAPINE. [Interacting]
     Active Substance: CLOZAPINE
     Indication: BIPOLAR DISORDER
     Dosage: UNK
     Route: 065
     Dates: start: 20110509
  4. ZOLPIDEM [Concomitant]
     Active Substance: ZOLPIDEM\ZOLPIDEM TARTRATE
     Indication: INSOMNIA
     Dosage: 10 MG, (2/ HS)
     Route: 065
  5. LITHIUM. [Interacting]
     Active Substance: LITHIUM
     Indication: INSOMNIA
  6. LORAZEPAM. [Interacting]
     Active Substance: LORAZEPAM
     Indication: INSOMNIA
  7. LORAZEPAM. [Interacting]
     Active Substance: LORAZEPAM
     Indication: BIPOLAR DISORDER
  8. FLURAZEPAM [Interacting]
     Active Substance: FLURAZEPAM\FLURAZEPAM HYDROCHLORIDE
     Indication: BIPOLAR DISORDER
     Dosage: 30 MG, (1/ HS)
     Route: 065
  9. VALPROATE SODIUM. [Suspect]
     Active Substance: VALPROATE SODIUM
     Indication: BIPOLAR DISORDER
     Dosage: 500 MG, (1/ AMHS)
     Route: 065
  10. FLURAZEPAM [Interacting]
     Active Substance: FLURAZEPAM\FLURAZEPAM HYDROCHLORIDE
     Indication: PSYCHOTIC BEHAVIOUR
  11. FLURAZEPAM [Interacting]
     Active Substance: FLURAZEPAM\FLURAZEPAM HYDROCHLORIDE
     Indication: INSOMNIA
  12. CLOZAPINE. [Interacting]
     Active Substance: CLOZAPINE
     Indication: PSYCHOTIC BEHAVIOUR
     Dosage: 100 MG (2/HS)
     Route: 065
     Dates: start: 20130830
  13. CLOZAPINE. [Interacting]
     Active Substance: CLOZAPINE
     Indication: INSOMNIA
     Dosage: 25 MG (3/HS)
     Route: 065
  14. LITHIUM. [Interacting]
     Active Substance: LITHIUM
     Indication: BIPOLAR DISORDER
     Dosage: 300 MG, (1/AMHS)
     Route: 065
  15. LITHIUM. [Interacting]
     Active Substance: LITHIUM
     Indication: PSYCHOTIC BEHAVIOUR

REACTIONS (4)
  - Drug interaction [Unknown]
  - Pneumonia aspiration [Unknown]
  - Pyrexia [Unknown]
  - Product use issue [Unknown]

NARRATIVE: CASE EVENT DATE: 20130902
